FAERS Safety Report 4613154-9 (Version None)
Quarter: 2005Q1

REPORT INFORMATION
  Report Type: 
  Country: None (occurrence: None)
  Receive Date: 20050316
  Receipt Date: 20050303
  Transmission Date: 20050727
  Serious: Yes (Hospitalization)
  Sender: FDA-Public Use
  Company Number: USA041285676

PATIENT
  Age: 61 Year
  Sex: Female
  Weight: 50 kg

DRUGS (6)
  1. FORTEO [Suspect]
     Indication: OSTEOPOROSIS
     Dosage: 20 UG/1 EVERY OTHER DAY
     Dates: start: 20041124
  2. CALTRATE + D [Concomitant]
  3. REMERON (MIRTAZAPINE ORIFARM) [Concomitant]
  4. PROTONIX [Concomitant]
  5. LORTAB [Concomitant]
  6. APO-METOPROLOL (METOPROLOL TARTRATE) [Concomitant]

REACTIONS (5)
  - ASTHENIA [None]
  - MEDICATION ERROR [None]
  - NAUSEA [None]
  - PHARMACEUTICAL PRODUCT COMPLAINT [None]
  - VOMITING [None]
